FAERS Safety Report 15137269 (Version 1)
Quarter: 2018Q3

REPORT INFORMATION
  Report Type: Spontaneous
  Country: GB (occurrence: PL)
  Receive Date: 20180712
  Receipt Date: 20180712
  Transmission Date: 20181010
  Serious: Yes (Other)
  Sender: FDA-Public Use
  Company Number: PL-FRESENIUS KABI-FK201807774

PATIENT
  Age: 4 Year
  Sex: Male
  Weight: 17 kg

DRUGS (1)
  1. VANCOMYCIN (MANUFACTURER UNKNOWN) [Suspect]
     Active Substance: VANCOMYCIN
     Indication: SEPSIS
     Dosage: 170 MG X 4
     Route: 042
     Dates: start: 20150512, end: 20150512

REACTIONS (3)
  - Contusion [Recovered/Resolved]
  - Pain in extremity [Recovered/Resolved]
  - Anaphylactic reaction [Recovered/Resolved]

NARRATIVE: CASE EVENT DATE: 20150512
